FAERS Safety Report 19832853 (Version 1)
Quarter: 2021Q3

REPORT INFORMATION
  Report Type: Spontaneous
  Country: US (occurrence: US)
  Receive Date: 20210915
  Receipt Date: 20210915
  Transmission Date: 20211014
  Serious: Yes (Other)
  Sender: FDA-Public Use
  Company Number: US-GLAXOSMITHKLINE-US2021GSK195024

PATIENT
  Sex: Female

DRUGS (15)
  1. ZANTAC [Suspect]
     Active Substance: RANITIDINE HYDROCHLORIDE
     Indication: GASTROOESOPHAGEAL REFLUX DISEASE
     Dosage: 175 MG, QD
     Route: 065
     Dates: start: 200001, end: 201812
  2. ZANTAC [Suspect]
     Active Substance: RANITIDINE HYDROCHLORIDE
     Indication: GASTROOESOPHAGEAL REFLUX DISEASE
     Dosage: 175 MG, QD
     Route: 065
     Dates: start: 200001, end: 201812
  3. RANITIDINE. [Suspect]
     Active Substance: RANITIDINE
     Indication: GASTROOESOPHAGEAL REFLUX DISEASE
     Dosage: 175 MG, QD
     Route: 065
     Dates: start: 200604, end: 201812
  4. RANITIDINE. [Suspect]
     Active Substance: RANITIDINE
     Indication: CARDIAC OPERATION
  5. ZANTAC [Suspect]
     Active Substance: RANITIDINE HYDROCHLORIDE
     Indication: CARDIAC OPERATION
  6. ZANTAC [Suspect]
     Active Substance: RANITIDINE HYDROCHLORIDE
     Indication: NECK SURGERY
     Dosage: 300 MG, QD
     Route: 065
     Dates: start: 200001, end: 201812
  7. RANITIDINE. [Suspect]
     Active Substance: RANITIDINE
     Indication: CARDIAC OPERATION
  8. RANITIDINE. [Suspect]
     Active Substance: RANITIDINE
     Indication: GASTROOESOPHAGEAL REFLUX DISEASE
     Dosage: 175 MG, QD
     Route: 065
     Dates: start: 200604, end: 201812
  9. ZANTAC [Suspect]
     Active Substance: RANITIDINE HYDROCHLORIDE
     Indication: CARDIAC OPERATION
  10. RANITIDINE. [Suspect]
     Active Substance: RANITIDINE
     Indication: NECK SURGERY
     Dosage: 300 MG, QD
     Route: 065
     Dates: start: 200604, end: 201812
  11. RANITIDINE. [Suspect]
     Active Substance: RANITIDINE
     Indication: GASTROOESOPHAGEAL REFLUX DISEASE
     Dosage: UNK, FOR SURGERIES
     Route: 065
     Dates: start: 200604, end: 201812
  12. ZANTAC [Suspect]
     Active Substance: RANITIDINE HYDROCHLORIDE
     Indication: NECK SURGERY
     Dosage: 300 MG, QD
     Route: 065
     Dates: start: 200001, end: 201812
  13. RANITIDINE. [Suspect]
     Active Substance: RANITIDINE
     Indication: NECK SURGERY
  14. RANITIDINE. [Suspect]
     Active Substance: RANITIDINE
     Indication: CARDIAC OPERATION
  15. RANITIDINE. [Suspect]
     Active Substance: RANITIDINE
     Indication: NECK SURGERY
     Dosage: 300 MG, QD
     Route: 065
     Dates: start: 200604, end: 201812

REACTIONS (1)
  - Breast cancer [Unknown]
